FAERS Safety Report 7989361-4 (Version None)
Quarter: 2011Q4

REPORT INFORMATION
  Report Type: 
  Country: None (occurrence: None)
  Receive Date: 20111219
  Receipt Date: 20111215
  Transmission Date: 20120403
  Serious: Yes (Other)
  Sender: FDA-Public Use
  Company Number: US-SHIRE-ALL1-2011-04978

PATIENT
  Sex: Male
  Weight: 97.506 kg

DRUGS (3)
  1. CARBATROL [Suspect]
     Indication: CONVULSION
     Dosage: 800 MG, OTHER (TWICE DAILY)
     Route: 048
     Dates: start: 20050101
  2. ZONEGRAN [Concomitant]
     Indication: CONVULSION
     Dosage: 100 MG, 1X/DAY:QD
     Route: 048
  3. EFFEXOR [Concomitant]
     Indication: DEPRESSION
     Dosage: 75 MG, OTHER (TWICE DAILY)
     Route: 048

REACTIONS (2)
  - PRODUCT QUALITY ISSUE [None]
  - CONVULSION [None]
